FAERS Safety Report 13718384 (Version 1)
Quarter: 2017Q3

REPORT INFORMATION
  Report Type: Spontaneous
  Country: US (occurrence: US)
  Receive Date: 20170705
  Receipt Date: 20170705
  Transmission Date: 20171127
  Serious: Yes (Hospitalization, Other)
  Sender: FDA-Public Use
  Company Number: US-PFIZER INC-2017280640

PATIENT
  Age: 60 Year
  Sex: Female

DRUGS (1)
  1. GEMCITABINE HYDROCHLORIDE. [Suspect]
     Active Substance: GEMCITABINE HYDROCHLORIDE
     Indication: BREAST CANCER METASTATIC
     Dosage: 1424 MG, WEEKLY FOR 3 WEEKS OF THE MONTH
     Dates: start: 200404

REACTIONS (3)
  - Red blood cell sedimentation rate increased [Recovered/Resolved]
  - Acute respiratory distress syndrome [Recovered/Resolved]
  - Pulmonary oedema [Recovered/Resolved]
